FAERS Safety Report 9717472 (Version 2)
Quarter: 2015Q3

REPORT INFORMATION
  Report Type: Spontaneous
  Country: US (occurrence: US)
  Receive Date: 20131127
  Receipt Date: 20150803
  Transmission Date: 20151125
  Serious: No
  Sender: FDA-Public Use
  Company Number: US-GILEAD-2009-0019704

PATIENT
  Age: 70 Year
  Sex: Female
  Weight: 98.43 kg

DRUGS (15)
  1. LEVEMIR [Concomitant]
     Active Substance: INSULIN DETEMIR
  2. HCTZ [Concomitant]
     Active Substance: HYDROCHLOROTHIAZIDE
  3. CLONIDINE. [Concomitant]
     Active Substance: CLONIDINE
  4. RAMIPRIL. [Concomitant]
     Active Substance: RAMIPRIL
  5. TRICOR [Concomitant]
     Active Substance: FENOFIBRATE
  6. LESCOL [Concomitant]
     Active Substance: FLUVASTATIN SODIUM
  7. LEVOXYL [Concomitant]
     Active Substance: LEVOTHYROXINE SODIUM
  8. METFORMIN HYDROCHLORIDE/GLIPIZIDE [Concomitant]
  9. TOPROL XL [Concomitant]
     Active Substance: METOPROLOL SUCCINATE
  10. XALATAN [Concomitant]
     Active Substance: LATANOPROST
  11. LETAIRIS [Suspect]
     Active Substance: AMBRISENTAN
     Indication: PULMONARY ARTERIAL HYPERTENSION
     Route: 048
     Dates: start: 20081219
  12. LASIX [Concomitant]
     Active Substance: FUROSEMIDE
  13. DILTIAZEM HYDROCHLORIDE EXTENDED RELEASE [Concomitant]
     Active Substance: DILTIAZEM HYDROCHLORIDE
  14. ASPIRIN EC [Concomitant]
     Active Substance: ASPIRIN
  15. CALCIUM [Concomitant]
     Active Substance: CALCIUM

REACTIONS (1)
  - Swelling [Unknown]
